FAERS Safety Report 5285439-7 (Version None)
Quarter: 2007Q1

REPORT INFORMATION
  Report Type: 
  Country: None (occurrence: None)
  Receive Date: 20070328
  Receipt Date: 20070321
  Transmission Date: 20070707
  Serious: Yes (Hospitalization)
  Sender: FDA-Public Use
  Company Number: 2007AL001135

PATIENT
  Age: 92 Year
  Sex: Female

DRUGS (3)
  1. ALPRAZOLAM [Suspect]
     Indication: INSOMNIA
     Dosage: .25 MG; HS; PO
     Route: 048
     Dates: start: 20070201, end: 20070303
  2. NORVASC [Concomitant]
  3. INDERAL [Concomitant]

REACTIONS (4)
  - ARTHRALGIA [None]
  - BACK PAIN [None]
  - FALL [None]
  - SLEEP WALKING [None]
